FAERS Safety Report 10355018 (Version 1)
Quarter: 2014Q3

REPORT INFORMATION
  Report Type: Spontaneous
  Country: US (occurrence: None)
  Receive Date: 20140729
  Receipt Date: 20140729
  Transmission Date: 20150326
  Serious: Yes (Other)
  Sender: FDA-Public Use
  Company Number: None

PATIENT
  Age: 26 Year
  Sex: Female
  Weight: 73.94 kg

DRUGS (1)
  1. OGESTREL 0.5/50 [Suspect]
     Active Substance: ETHINYL ESTRADIOL\NORGESTREL
     Indication: MENSTRUAL DISORDER
     Dosage: TAKE 1 TABLET FOR 84 DAYS ONCE DAILY TAKEN BY MOUTH
     Route: 048
     Dates: start: 20140429, end: 20140728

REACTIONS (2)
  - Drug ineffective [None]
  - Product quality issue [None]

NARRATIVE: CASE EVENT DATE: 20140429
